FAERS Safety Report 4905339-9 (Version None)
Quarter: 2006Q1

REPORT INFORMATION
  Report Type: 
  Country: None (occurrence: None)
  Receive Date: 20060208
  Receipt Date: 20060130
  Transmission Date: 20060701
  Serious: Yes (Hospitalization)
  Sender: FDA-Public Use
  Company Number: 2006PK00281

PATIENT
  Age: 63 Year
  Sex: Female

DRUGS (18)
  1. SEROQUEL [Suspect]
     Route: 048
     Dates: start: 20050712, end: 20050712
  2. SEROQUEL [Suspect]
     Route: 048
     Dates: start: 20050713, end: 20050713
  3. SEROQUEL [Suspect]
     Route: 048
     Dates: start: 20050714, end: 20050802
  4. SEROQUEL [Suspect]
     Route: 048
     Dates: start: 20050803, end: 20050811
  5. DELPRAL [Interacting]
     Dates: start: 20050713, end: 20050719
  6. DELPRAL [Interacting]
     Dates: start: 20050720
  7. TEMESTA [Suspect]
     Route: 048
     Dates: start: 20050711, end: 20050713
  8. TEMESTA [Suspect]
     Route: 048
     Dates: start: 20050714, end: 20050719
  9. TEMESTA [Suspect]
     Route: 048
     Dates: start: 20050720, end: 20050722
  10. TEMESTA [Suspect]
     Route: 048
     Dates: start: 20050723, end: 20050727
  11. AKINETON [Suspect]
     Route: 048
     Dates: start: 20050711, end: 20050713
  12. AKINETON [Suspect]
     Route: 048
     Dates: start: 20050714, end: 20050717
  13. AKINETON [Suspect]
     Route: 048
     Dates: start: 20050718, end: 20050720
  14. DOMINAL FORTE [Concomitant]
     Dates: start: 20050711, end: 20050714
  15. FORLAX [Concomitant]
     Dates: start: 20050711, end: 20050717
  16. FORLAX [Concomitant]
     Dates: start: 20050718, end: 20050721
  17. NEXIUM [Concomitant]
     Dates: start: 20050711, end: 20050917
  18. SORTIS [Concomitant]
     Dates: start: 20050711, end: 20050714

REACTIONS (2)
  - DIZZINESS [None]
  - DRUG INTERACTION [None]
